FAERS Safety Report 9122733 (Version 1)
Quarter: 2013Q1

REPORT INFORMATION
  Report Type: Spontaneous
  Country: BE (occurrence: BE)
  Receive Date: 20130227
  Receipt Date: 20130227
  Transmission Date: 20140127
  Serious: Yes (Other)
  Sender: FDA-Public Use
  Company Number: BE-PFIZER INC-2013066349

PATIENT
  Age: 60 Year
  Sex: Male

DRUGS (1)
  1. ZYVOXID [Suspect]
     Indication: STAPHYLOCOCCAL BACTERAEMIA
     Dosage: UNK

REACTIONS (6)
  - Abasia [Not Recovered/Not Resolved]
  - Visual acuity reduced [Recovered/Resolved]
  - Somnolence [Unknown]
  - Pain in extremity [Unknown]
  - Impaired driving ability [Not Recovered/Not Resolved]
  - Off label use [Unknown]
